FAERS Safety Report 21744979 (Version 1)
Quarter: 2022Q4

REPORT INFORMATION
  Report Type: Spontaneous
  Country: JP (occurrence: JP)
  Receive Date: 20221219
  Receipt Date: 20221219
  Transmission Date: 20230113
  Serious: Yes (Other)
  Sender: FDA-Public Use
  Company Number: JP-NOVOPROD-1000569

PATIENT
  Age: 8 Decade
  Sex: Male

DRUGS (2)
  1. VICTOZA [Suspect]
     Active Substance: LIRAGLUTIDE
     Dosage: 1.8 MG AT NOON
     Route: 058
  2. VICTOZA [Suspect]
     Active Substance: LIRAGLUTIDE
     Indication: Type 2 diabetes mellitus
     Dosage: 0.9 MG AT NOON
     Route: 058

REACTIONS (10)
  - Cerebral infarction [Unknown]
  - Pruritus [Unknown]
  - Dizziness [Unknown]
  - Dysarthria [Unknown]
  - Visual acuity reduced [Unknown]
  - Weight decreased [Unknown]
  - Rash [Unknown]
  - Nausea [Unknown]
  - Decreased appetite [Unknown]
  - Inappropriate schedule of product administration [Unknown]
